FAERS Safety Report 14185855 (Version 1)
Quarter: 2017Q4

REPORT INFORMATION
  Report Type: Spontaneous
  Country: US (occurrence: None)
  Receive Date: 20171112
  Receipt Date: 20171112
  Transmission Date: 20180321
  Serious: Yes (Death, Hospitalization)
  Sender: FDA-Public Use
  Company Number: None

PATIENT
  Sex: Male

DRUGS (1)
  1. BOSULIF [Suspect]
     Active Substance: BOSUTINIB MONOHYDRATE
     Indication: IRON DEFICIENCY ANAEMIA
     Route: 048
     Dates: start: 20170921

REACTIONS (3)
  - Chest pain [None]
  - Nausea [None]
  - Anaemia [None]
